FAERS Safety Report 10800424 (Version 1)
Quarter: 2015Q1

REPORT INFORMATION
  Report Type: Spontaneous
  Country: US (occurrence: US)
  Receive Date: 20150216
  Receipt Date: 20150216
  Transmission Date: 20150721
  Serious: No
  Sender: FDA-Public Use
  Company Number: US-PFIZER INC-2015048331

PATIENT
  Age: 77 Year
  Sex: Male

DRUGS (5)
  1. LEVOTHYROXINE SODIUM. [Suspect]
     Active Substance: LEVOTHYROXINE SODIUM
     Dosage: UNK
  2. SINEMET [Suspect]
     Active Substance: CARBIDOPA\LEVODOPA
     Indication: PARKINSON^S DISEASE
     Dosage: UNK
  3. PROZAC [Concomitant]
     Active Substance: FLUOXETINE HYDROCHLORIDE
     Indication: AFFECTIVE DISORDER
     Dosage: UNK
  4. NEUPRO [Suspect]
     Active Substance: ROTIGOTINE
     Indication: PARKINSON^S DISEASE
     Dosage: UNK
  5. POTASSIUM [Concomitant]
     Active Substance: POTASSIUM
     Indication: DIURETIC THERAPY
     Dosage: UNK

REACTIONS (9)
  - Hypersomnia [Unknown]
  - Emotional disorder [Unknown]
  - Fatigue [Unknown]
  - Feeling abnormal [Unknown]
  - Nightmare [Unknown]
  - Asthenia [Unknown]
  - Abnormal dreams [Unknown]
  - Hallucination [Unknown]
  - Confusional state [Unknown]
